FAERS Safety Report 8370808-9 (Version None)
Quarter: 2012Q2

REPORT INFORMATION
  Report Type: 
  Country: None (occurrence: None)
  Receive Date: 20120518
  Receipt Date: 20110719
  Transmission Date: 20120825
  Serious: No
  Sender: FDA-Public Use
  Company Number: US-ASTRAZENECA-2011SE51979

PATIENT
  Sex: Male

DRUGS (3)
  1. PRILOSEC OTC [Suspect]
     Indication: DYSPEPSIA
     Route: 048
     Dates: start: 20110705, end: 20110710
  2. MIGRAINE MEDICATION [Concomitant]
     Dosage: UNKNOWN
  3. PRILOSEC OTC [Suspect]
     Route: 048
     Dates: start: 20110705, end: 20110710

REACTIONS (4)
  - HYPERCHLORHYDRIA [None]
  - DRUG INEFFECTIVE [None]
  - DECREASED APPETITE [None]
  - ABDOMINAL PAIN UPPER [None]
